FAERS Safety Report 8387134-4 (Version None)
Quarter: 2012Q2

REPORT INFORMATION
  Report Type: 
  Country: None (occurrence: None)
  Receive Date: 20120523
  Receipt Date: 20120523
  Transmission Date: 20120825
  Serious: Yes (Other)
  Sender: FDA-Public Use
  Company Number: None

PATIENT
  Age: 73 Year
  Sex: Female

DRUGS (14)
  1. ALENDRONATE SODIUM [Suspect]
     Dosage: 70MG Q WEEK PO
     Route: 048
     Dates: start: 20010101, end: 20080101
  2. WARFARIN SODIUM [Concomitant]
  3. PROPAFENONE HCL [Concomitant]
  4. ATENOLOL [Concomitant]
  5. SIMVASTATIN [Concomitant]
  6. LOSARTAN POTASSIUM AND HYDROCHLOROTHIAZIDE [Concomitant]
  7. ASPIRIN [Concomitant]
  8. SYNTHROID [Concomitant]
  9. REPLENEX [Concomitant]
  10. FERROUS SUL TAB [Concomitant]
  11. BONIVA [Suspect]
     Indication: OSTEOPENIA
     Dosage: 150MG QMONTH PO
     Route: 048
     Dates: start: 20090101, end: 20111201
  12. VIT C [Concomitant]
  13. CALCIUM CITRATE + D [Concomitant]
  14. ASPIRIN [Concomitant]

REACTIONS (2)
  - FEMUR FRACTURE [None]
  - FALL [None]
